FAERS Safety Report 8618502 (Version 3)
Quarter: 2013Q4

REPORT INFORMATION
  Report Type: Spontaneous
  Country: US (occurrence: US)
  Receive Date: 20120618
  Receipt Date: 20131128
  Transmission Date: 20140711
  Serious: Yes (Disabling)
  Sender: FDA-Public Use
  Company Number: US-ASTRAZENECA-2012SE36046

PATIENT
  Sex: Female
  Weight: 113.4 kg

DRUGS (41)
  1. NEXIUM [Suspect]
     Indication: INFLAMMATION
     Route: 048
     Dates: end: 2008
  2. NEXIUM [Suspect]
     Indication: ABDOMINAL DISCOMFORT
     Route: 048
     Dates: end: 2008
  3. NEXIUM [Suspect]
     Indication: DYSPEPSIA
     Route: 048
     Dates: end: 2008
  4. NEXIUM [Suspect]
     Indication: INFLAMMATION
     Route: 048
     Dates: start: 2008, end: 2009
  5. NEXIUM [Suspect]
     Indication: ABDOMINAL DISCOMFORT
     Route: 048
     Dates: start: 2008, end: 2009
  6. NEXIUM [Suspect]
     Indication: DYSPEPSIA
     Route: 048
     Dates: start: 2008, end: 2009
  7. NEXIUM [Suspect]
     Indication: INFLAMMATION
     Route: 048
     Dates: start: 200902
  8. NEXIUM [Suspect]
     Indication: ABDOMINAL DISCOMFORT
     Route: 048
     Dates: start: 200902
  9. NEXIUM [Suspect]
     Indication: DYSPEPSIA
     Route: 048
     Dates: start: 200902
  10. PRILOSEC [Suspect]
     Route: 048
  11. PRILOSEC OTC [Suspect]
     Route: 048
     Dates: end: 2007
  12. PRILOSEC OTC [Suspect]
     Route: 048
     Dates: start: 200908
  13. DEXILANT [Concomitant]
  14. ZANTAC [Concomitant]
     Indication: ULCER
  15. PREVACID OTC [Concomitant]
  16. PEPTO BISMOL [Concomitant]
  17. MYLANTA [Concomitant]
  18. HYZAAR [Concomitant]
     Indication: CARDIAC DISORDER
     Dates: start: 200902
  19. HYZAAR [Concomitant]
     Indication: HYPERTENSION
     Dates: start: 200902
  20. FLUOXETINE [Concomitant]
     Indication: DEPRESSION
  21. FLUOXETINE [Concomitant]
     Indication: ANXIETY
  22. FLUOXETINE [Concomitant]
     Indication: DEPRESSION
     Dates: start: 200902
  23. FLUOXETINE [Concomitant]
     Indication: ANXIETY
     Dates: start: 200902
  24. CYCLOBENZAPRINE [Concomitant]
     Indication: MUSCLE RELAXANT THERAPY
  25. CYCLOBENZAPRINE [Concomitant]
     Indication: MUSCLE RELAXANT THERAPY
     Dates: start: 200902
  26. AMBIEN [Concomitant]
     Indication: SLEEP DISORDER
  27. AMLODIPINE BESYLATE [Concomitant]
     Indication: BLOOD CHOLESTEROL ABNORMAL
  28. AMLODIPINE BESYLATE [Concomitant]
     Indication: BLOOD CHOLESTEROL ABNORMAL
     Dates: start: 200902
  29. GEODON [Concomitant]
     Indication: AFFECTIVE DISORDER
  30. GEODON [Concomitant]
     Indication: AFFECTIVE DISORDER
     Dates: start: 200902
  31. TRAZODONE [Concomitant]
     Indication: SLEEP DISORDER
  32. TRAZODONE [Concomitant]
     Indication: SLEEP DISORDER
     Dates: start: 200902
  33. BENZOTROPINE [Concomitant]
     Indication: ANXIETY
     Dates: start: 200902
  34. DICYCLOMINE [Concomitant]
     Indication: IRRITABLE BOWEL SYNDROME
  35. LORATADINE [Concomitant]
     Indication: SINUS DISORDER
  36. VITAMIN D [Concomitant]
     Dosage: 5000 1 WEAK
  37. NITROGLYCERINE [Concomitant]
     Dosage: 0.4 LOW IRON
  38. VICODIN [Concomitant]
     Dates: start: 200910
  39. PANIC ATTACK MEDS [Concomitant]
     Dosage: ONCE DAILY
     Dates: start: 200910
  40. SEROQUEL [Concomitant]
     Dates: start: 200908
  41. BENICAR [Concomitant]
     Dates: start: 200908

REACTIONS (16)
  - Impaired work ability [Unknown]
  - Mental disorder [Unknown]
  - Multiple fractures [Unknown]
  - Hand fracture [Unknown]
  - Arthropathy [Unknown]
  - Nervous system disorder [Unknown]
  - Vaginal haemorrhage [Unknown]
  - Dysuria [Unknown]
  - Sleep apnoea syndrome [Unknown]
  - Benign neoplasm [Unknown]
  - Arthritis [Unknown]
  - Calcium deficiency [Unknown]
  - Rheumatoid arthritis [Unknown]
  - Vitamin D deficiency [Unknown]
  - Osteoporosis [Unknown]
  - Musculoskeletal discomfort [Unknown]
